FAERS Safety Report 8862966 (Version 1)
Quarter: 2012Q4

REPORT INFORMATION
  Report Type: 
  Country: US (occurrence: US)
  Receive Date: 20121026
  Receipt Date: 20121026
  Transmission Date: 20130627
  Serious: Yes (Hospitalization)
  Sender: FDA-Public Use
  Company Number: US-PFIZER INC-2012267978

PATIENT
  Age: 63 Year
  Sex: Female
  Weight: 47.17 kg

DRUGS (4)
  1. PRISTIQ [Suspect]
     Indication: DEPRESSION
     Dosage: 50 mg, daily
     Route: 048
     Dates: start: 201112
  2. PREMARIN [Suspect]
     Indication: BLOOD OESTROGEN
     Dosage: 1.25 mg, daily
     Route: 048
  3. WELLBUTRIN [Concomitant]
     Indication: DEPRESSION
     Dosage: 300 mg, daily
  4. AMBIEN [Concomitant]
     Indication: SLEEP DISORDER
     Dosage: 10 mg, daily

REACTIONS (1)
  - Rectal neoplasm [Unknown]
